FAERS Safety Report 7280259-6 (Version None)
Quarter: 2011Q1

REPORT INFORMATION
  Report Type: 
  Country: None (occurrence: None)
  Receive Date: 20110208
  Receipt Date: 20101022
  Transmission Date: 20110831
  Serious: Yes (Other)
  Sender: FDA-Public Use
  Company Number: US-BAYER-200811982NA

PATIENT
  Sex: Female
  Weight: 55 kg

DRUGS (40)
  1. MAGNEVIST [Suspect]
     Dates: start: 19961030, end: 19961030
  2. MAGNEVIST [Suspect]
     Dates: start: 19971117, end: 19971117
  3. MAGNEVIST [Suspect]
     Dates: start: 19991109, end: 19991109
  4. FOLIC ACID [Concomitant]
  5. RENAGEL [Concomitant]
  6. DEMADEX [Concomitant]
  7. MAGNEVIST [Suspect]
     Dates: start: 20040520, end: 20040520
  8. CELEBREX [Concomitant]
  9. UNCODEABLE ^UNCLASSIFIABLE^ [Concomitant]
  10. ZEMPLAR [Concomitant]
  11. CLONIDINE [Concomitant]
  12. MAGNEVIST [Suspect]
     Dates: start: 20020130, end: 20020130
  13. OMNISCAN [Suspect]
     Dates: start: 20050320, end: 20050320
  14. PREMPRO [Concomitant]
  15. ZESTRIL [Concomitant]
  16. ARANESP [Concomitant]
  17. NEPHROVITE [VIT C,VIT H,B5,B12,B9,B3,B6,B2,B1 HCL] [Concomitant]
  18. PROGRAF [Concomitant]
  19. OMNISCAN [Suspect]
     Indication: NUCLEAR MAGNETIC RESONANCE IMAGING
     Dates: start: 20050130, end: 20050130
  20. EPOGEN [Concomitant]
  21. SENSIPAR [Concomitant]
  22. CYTOXAN [Concomitant]
     Dates: start: 19880101, end: 19910101
  23. MAGNEVIST [Suspect]
     Indication: NUCLEAR MAGNETIC RESONANCE IMAGING ABDOMINAL
     Dates: start: 19970430, end: 19970430
  24. MAGNEVIST [Suspect]
     Dates: start: 19981231, end: 19981231
  25. MAGNEVIST [Suspect]
     Dates: start: 20050130, end: 20050130
  26. SYNTHROID [Concomitant]
  27. FERROUS SULFATE [Concomitant]
  28. MYFORTIC [Concomitant]
  29. PREDNISONE [Concomitant]
  30. SPIRONOLACTONE [Concomitant]
  31. METOPROLOL [Concomitant]
  32. MAGNEVIST [Suspect]
     Dates: start: 20001108, end: 20001108
  33. MIACALCIN [Concomitant]
  34. PROCARDIA [Concomitant]
  35. MAGNEVIST [Suspect]
     Dates: start: 20030320, end: 20030320
  36. ROCALTROL [Concomitant]
  37. ALEVE [Concomitant]
  38. ADVAIR [Concomitant]
  39. EXFORGE [Concomitant]
  40. ALTEPLASE [Concomitant]

REACTIONS (1)
  - NEPHROGENIC SYSTEMIC FIBROSIS [None]
